FAERS Safety Report 8600266 (Version 3)
Quarter: 2014Q2

REPORT INFORMATION
  Report Type: Spontaneous
  Country: US (occurrence: US)
  Receive Date: 20120606
  Receipt Date: 20140418
  Transmission Date: 20141212
  Serious: Yes (Hospitalization, Disabling, Other)
  Sender: FDA-Public Use
  Company Number: US-ASTRAZENECA-2012SE35090

PATIENT
  Age: 54 Year
  Sex: Female
  Weight: 59 kg

DRUGS (19)
  1. NEXIUM [Suspect]
     Indication: GASTRIC ULCER
     Route: 048
     Dates: start: 20011113, end: 20030806
  2. NEXIUM [Suspect]
     Indication: GASTROOESOPHAGEAL REFLUX DISEASE
     Route: 048
     Dates: start: 20011113, end: 20030806
  3. NEXIUM [Suspect]
     Indication: GASTRIC ULCER
     Route: 048
     Dates: start: 20011129
  4. NEXIUM [Suspect]
     Indication: GASTROOESOPHAGEAL REFLUX DISEASE
     Route: 048
     Dates: start: 20011129
  5. NEXIUM [Suspect]
     Indication: GASTRIC ULCER
     Route: 048
     Dates: start: 2004
  6. NEXIUM [Suspect]
     Indication: GASTROOESOPHAGEAL REFLUX DISEASE
     Route: 048
     Dates: start: 2004
  7. PRILOSEC [Suspect]
     Route: 048
  8. PRILOSEC OTC [Suspect]
     Indication: GASTROOESOPHAGEAL REFLUX DISEASE
     Dosage: DAILY
     Route: 048
     Dates: start: 2012
  9. PRILOSEC OTC [Suspect]
     Indication: ULCER
     Dosage: DAILY
     Route: 048
     Dates: start: 2012
  10. PROTONIX [Concomitant]
  11. ISOSORBIDE/ISOSORBIDE NITRATE [Concomitant]
     Indication: CARDIAC DISORDER
     Dates: start: 2000
  12. ZOLOFT [Concomitant]
  13. LYRICA [Concomitant]
  14. GABAPENTIN [Concomitant]
  15. NITRO [Concomitant]
     Indication: CARDIAC DISORDER
     Dosage: PRN
     Route: 048
     Dates: start: 2001
  16. TRENTAL [Concomitant]
     Indication: CARDIOVASCULAR DISORDER
     Dosage: TID
     Route: 048
     Dates: start: 2005
  17. TRENTAL [Concomitant]
     Indication: CEREBROVASCULAR ACCIDENT
     Dosage: TID
     Route: 048
     Dates: start: 2005
  18. UNKNOWN/THREE OTHER CONCOMITANT MEDICATIONS [Concomitant]
     Indication: ASTHMA
  19. PREVACID [Concomitant]

REACTIONS (15)
  - Arthropathy [Unknown]
  - Lower limb fracture [Unknown]
  - Activities of daily living impaired [Unknown]
  - Transient ischaemic attack [Unknown]
  - Cerebrovascular accident [Unknown]
  - Rib fracture [Unknown]
  - Osteoporosis [Unknown]
  - Angina pectoris [Unknown]
  - Arthritis [Unknown]
  - Asthma [Unknown]
  - Vitamin D deficiency [Unknown]
  - Body height decreased [Unknown]
  - Spinal disorder [Unknown]
  - Pain [Unknown]
  - Feeling abnormal [Unknown]
